FAERS Safety Report 9226231 (Version 1)
Quarter: 2013Q2

REPORT INFORMATION
  Report Type: Spontaneous
  Country: US (occurrence: US)
  Receive Date: 20130411
  Receipt Date: 20130411
  Transmission Date: 20140414
  Serious: Yes (Other)
  Sender: FDA-Public Use
  Company Number: US-TEVA-396658USA

PATIENT
  Sex: Female
  Weight: 72.64 kg

DRUGS (4)
  1. BACLOFEN [Suspect]
     Dosage: 10 MILLIGRAM DAILY;
  2. LYRICA [Suspect]
     Indication: FIBROMYALGIA
     Dosage: 225 MILLIGRAM DAILY;
  3. DURAGESIC [Suspect]
     Indication: FIBROMYALGIA
     Dosage: 25 MICROGRAM DAILY;
     Route: 062
  4. VICODIN [Suspect]
     Indication: FIBROMYALGIA
     Dosage: 7.5/750 MG 3X/DAY

REACTIONS (2)
  - Disease progression [Unknown]
  - Fibromyalgia [Unknown]
